FAERS Safety Report 10691432 (Version 1)
Quarter: 2015Q1

REPORT INFORMATION
  Report Type: Spontaneous
  Country: GR (occurrence: GR)
  Receive Date: 20150105
  Receipt Date: 20150105
  Transmission Date: 20150720
  Serious: Yes (Hospitalization)
  Sender: FDA-Public Use
  Company Number: GR-PFIZER INC-2015000550

PATIENT
  Age: 32 Year
  Sex: Female

DRUGS (3)
  1. CALCIUM [Concomitant]
     Active Substance: CALCIUM
     Dosage: UNK
  2. HYDROCORTISONE SODIUM SUCCINATE [Suspect]
     Active Substance: HYDROCORTISONE SODIUM SUCCINATE
     Indication: DERMATITIS ALLERGIC
     Dosage: 100 MG, 4X/DAY
     Route: 042
  3. ALPHACALCIDOL [Concomitant]
     Active Substance: ALFACALCIDOL

REACTIONS (3)
  - Tetany [Recovering/Resolving]
  - Hypocalcaemia [Recovering/Resolving]
  - Disease recurrence [Recovering/Resolving]
